FAERS Safety Report 7956043 (Version 2)
Quarter: 2016Q2

REPORT INFORMATION
  Report Type: Spontaneous
  Country: US (occurrence: US)
  Receive Date: 20110523
  Receipt Date: 20160601
  Transmission Date: 20160815
  Serious: No
  Sender: FDA-Public Use
  Company Number: US-NOVEN-11US001688

PATIENT
  Age: 8 Year
  Sex: Male

DRUGS (2)
  1. METHYLPHENIDATE. [Concomitant]
     Active Substance: METHYLPHENIDATE
     Route: 048
  2. DAYTRANA [Suspect]
     Active Substance: METHYLPHENIDATE
     Indication: ATTENTION DEFICIT/HYPERACTIVITY DISORDER
     Dosage: 20 MG, 1X/DAY: QD
     Route: 062
     Dates: start: 2010

REACTIONS (6)
  - Accidental exposure to product [Unknown]
  - Product quality issue [Not Recovered/Not Resolved]
  - Wrong technique in product usage process [Not Recovered/Not Resolved]
  - Drug administration error [Not Recovered/Not Resolved]
  - Off label use [Unknown]
  - No adverse event [Unknown]

NARRATIVE: CASE EVENT DATE: 20110125
